FAERS Safety Report 18333732 (Version 1)
Quarter: 2020Q3

REPORT INFORMATION
  Report Type: Spontaneous
  Country: US (occurrence: US)
  Receive Date: 20200930
  Receipt Date: 20200930
  Transmission Date: 20201103
  Serious: No
  Sender: FDA-Public Use
  Company Number: None

PATIENT
  Age: 73 Year
  Sex: Female
  Weight: 87.3 kg

DRUGS (7)
  1. FUROSEMIDE 40MG [Concomitant]
     Active Substance: FUROSEMIDE
  2. OXYBUTYNIN 5MG [Concomitant]
     Active Substance: OXYBUTYNIN
  3. MEKINIST [Concomitant]
     Active Substance: TRAMETINIB DIMETHYL SULFOXIDE
  4. TAFINLAR [Suspect]
     Active Substance: DABRAFENIB MESYLATE
     Indication: MALIGNANT MELANOMA
     Route: 048
  5. ELIQUIS [Concomitant]
     Active Substance: APIXABAN
  6. LISINOPRIL. [Concomitant]
     Active Substance: LISINOPRIL
  7. MAGNESIUM 200MG [Concomitant]

REACTIONS (2)
  - Myalgia [None]
  - Asthenia [None]

NARRATIVE: CASE EVENT DATE: 20200930
